FAERS Safety Report 4697064-7 (Version None)
Quarter: 2005Q2

REPORT INFORMATION
  Report Type: 
  Country: None (occurrence: None)
  Receive Date: 20050127
  Receipt Date: 20050127
  Transmission Date: 20051028
  Serious: Yes (Other)
  Sender: FDA-Public Use
  Company Number: None

PATIENT
  Sex: Female
  Weight: 131.5431 kg

DRUGS (8)
  1. MAXZIDE [Suspect]
     Dosage: 75/50 MG PO DAILY
     Route: 048
     Dates: start: 20040901
  2. HUMALOG MIX 75/25 [Concomitant]
  3. LASIX [Concomitant]
  4. VALIUM [Concomitant]
  5. CELEBREX [Concomitant]
  6. K-DUR 10 [Concomitant]
  7. COZAAR [Concomitant]
  8. CARDIZEM CD [Concomitant]

REACTIONS (3)
  - CHEST DISCOMFORT [None]
  - DYSPNOEA [None]
  - STOOL ANALYSIS ABNORMAL [None]
